FAERS Safety Report 7019375-2 (Version None)
Quarter: 2010Q3

REPORT INFORMATION
  Report Type: 
  Country: None (occurrence: None)
  Receive Date: 20100928
  Receipt Date: 20100915
  Transmission Date: 20110219
  Serious: No
  Sender: FDA-Public Use
  Company Number: US-BIOGENIDEC-2010BI032181

PATIENT
  Sex: Female

DRUGS (1)
  1. TYSABRI [Suspect]
     Indication: MULTIPLE SCLEROSIS
     Route: 042
     Dates: start: 20080516

REACTIONS (12)
  - ALTERED VISUAL DEPTH PERCEPTION [None]
  - ASTHMA [None]
  - BRONCHITIS [None]
  - DECREASED IMMUNE RESPONSIVENESS [None]
  - DIPLOPIA [None]
  - FALL [None]
  - GAIT DISTURBANCE [None]
  - MULTIPLE ALLERGIES [None]
  - MULTIPLE SCLEROSIS RELAPSE [None]
  - SOMNOLENCE [None]
  - STRABISMUS [None]
  - UPPER RESPIRATORY TRACT INFECTION [None]
